FAERS Safety Report 8075158-6 (Version None)
Quarter: 2012Q1

REPORT INFORMATION
  Report Type: 
  Country: None (occurrence: None)
  Receive Date: 20120127
  Receipt Date: 20120120
  Transmission Date: 20120608
  Serious: No
  Sender: FDA-Public Use
  Company Number: US-BIOGENIDEC-2012BI003093

PATIENT
  Age: 58 Year
  Sex: Female

DRUGS (1)
  1. AVONEX [Suspect]
     Indication: INFLUENZA LIKE ILLNESS
     Route: 030
     Dates: start: 19980301

REACTIONS (3)
  - GAIT DISTURBANCE [None]
  - MIGRAINE [None]
  - INFLUENZA LIKE ILLNESS [None]
